FAERS Safety Report 9047623 (Version 2)
Quarter: 2013Q2

REPORT INFORMATION
  Report Type: Spontaneous
  Country: US (occurrence: US)
  Receive Date: 20130204
  Receipt Date: 20130404
  Transmission Date: 20140414
  Serious: Yes (Other)
  Sender: FDA-Public Use
  Company Number: US-AMGEN-USASP2013004493

PATIENT
  Age: 53 Year
  Sex: Female
  Weight: 72.11 kg

DRUGS (1)
  1. ENBREL [Suspect]
     Indication: PSORIASIS
     Dosage: 50 MG, QWK
     Route: 058
     Dates: start: 2004, end: 20130116

REACTIONS (2)
  - Aspergillus infection [Recovering/Resolving]
  - Bronchitis [Unknown]
